FAERS Safety Report 10098209 (Version 1)
Quarter: 2014Q2

REPORT INFORMATION
  Report Type: Spontaneous
  Country: US (occurrence: US)
  Receive Date: 20140423
  Receipt Date: 20140423
  Transmission Date: 20141212
  Serious: No
  Sender: FDA-Public Use
  Company Number: US-BRISTOL-MYERS SQUIBB COMPANY-20091575

PATIENT
  Sex: Male

DRUGS (2)
  1. YERVOY [Suspect]
  2. BENADRYL [Concomitant]
     Indication: PREMEDICATION

REACTIONS (3)
  - Infusion related reaction [Unknown]
  - Back pain [Unknown]
  - Rash [Unknown]
